FAERS Safety Report 9659637 (Version 2)
Quarter: 2013Q4

REPORT INFORMATION
  Report Type: Report from Study
  Country: CA (occurrence: CA)
  Receive Date: 20131031
  Receipt Date: 20131101
  Transmission Date: 20140711
  Serious: Yes (Hospitalization, Other)
  Sender: FDA-Public Use
  Company Number: CA-JNJFOC-20131014885

PATIENT
  Age: 57 Year
  Sex: Female
  Weight: 81 kg

DRUGS (2)
  1. REMICADE [Suspect]
     Indication: CROHN^S DISEASE
     Route: 042
     Dates: start: 20071105
  2. CIPRO [Concomitant]
     Indication: FISTULA
     Route: 065

REACTIONS (6)
  - Intentional overdose [Unknown]
  - Suicide attempt [Unknown]
  - Depressed mood [Not Recovered/Not Resolved]
  - Fistula [Not Recovered/Not Resolved]
  - Drug ineffective [Not Recovered/Not Resolved]
  - Dysuria [Unknown]
